FAERS Safety Report 8443494-7 (Version None)
Quarter: 2012Q2

REPORT INFORMATION
  Report Type: 
  Country: None (occurrence: None)
  Receive Date: 20120605
  Receipt Date: 20120531
  Transmission Date: 20120825
  Serious: Yes (Life-Threatening)
  Sender: FDA-Public Use
  Company Number: 2012SP029809

PATIENT
  Age: 77 Year
  Sex: Male

DRUGS (3)
  1. VALPROATE SODIUM [Concomitant]
  2. FLUNITRAZEPAM [Concomitant]
  3. MIRTAZAPINE [Suspect]
     Indication: INSOMNIA
     Dosage: 7.5 MG;ONCE;PO
     Route: 048
     Dates: start: 20120523, end: 20120523

REACTIONS (3)
  - GLOSSOPTOSIS [None]
  - OFF LABEL USE [None]
  - HYPOPNOEA [None]
